FAERS Safety Report 5801357-7 (Version None)
Quarter: 2008Q3

REPORT INFORMATION
  Report Type: 
  Country: None (occurrence: None)
  Receive Date: 20080703
  Receipt Date: 20080703
  Transmission Date: 20090109
  Serious: Yes (Life-Threatening, Hospitalization)
  Sender: FDA-Public Use
  Company Number: None

PATIENT
  Sex: Female
  Weight: 54.4316 kg

DRUGS (1)
  1. LOTREL [Suspect]
     Indication: HYPERTENSION
     Dosage: 5-20MG CAP 1 PER DAY
     Dates: start: 20080101, end: 20080501

REACTIONS (4)
  - DYSPNOEA [None]
  - GINGIVAL SWELLING [None]
  - LOCAL SWELLING [None]
  - SWOLLEN TONGUE [None]
